FAERS Safety Report 7790794-X (Version None)
Quarter: 2011Q3

REPORT INFORMATION
  Report Type: 
  Country: None (occurrence: None)
  Receive Date: 20110930
  Receipt Date: 20110922
  Transmission Date: 20111222
  Serious: Yes (Death, Hospitalization)
  Sender: FDA-Public Use
  Company Number: NO-MERCK-1109USA02549

PATIENT
  Age: 71 Year
  Sex: Male

DRUGS (5)
  1. ZOCOR [Suspect]
     Route: 048
  2. METOPROLOL [Concomitant]
     Route: 048
  3. RAMIPRIL [Concomitant]
     Route: 048
  4. TRABECTEDIN [Suspect]
     Indication: METASTASES TO LUNG
     Dosage: DOSE TO BE GIVEN OVER 24 HOURS
     Route: 042
     Dates: start: 20110801
  5. ASPIRIN [Concomitant]
     Route: 048

REACTIONS (9)
  - FEBRILE NEUTROPENIA [None]
  - WHITE BLOOD CELL COUNT DECREASED [None]
  - PLATELET COUNT DECREASED [None]
  - ANURIA [None]
  - BLOOD CREATININE INCREASED [None]
  - TROPONIN INCREASED [None]
  - RENAL FAILURE ACUTE [None]
  - BLOOD CREATINE PHOSPHOKINASE INCREASED [None]
  - LIVER FUNCTION TEST ABNORMAL [None]
